FAERS Safety Report 11238065 (Version 5)
Quarter: 2015Q4

REPORT INFORMATION
  Report Type: Report from Study
  Country: JP (occurrence: JP)
  Receive Date: 20150703
  Receipt Date: 20151121
  Transmission Date: 20160304
  Serious: Yes (Hospitalization, Other)
  Sender: FDA-Public Use
  Company Number: JP-BRISTOL-MYERS SQUIBB COMPANY-BMS-2015-014226

PATIENT
  Age: 75 Year
  Sex: Female

DRUGS (6)
  1. RINDERON                           /00008501/ [Concomitant]
     Active Substance: BETAMETHASONE
     Indication: BRAIN OEDEMA
     Dosage: 2 MG, UNK
     Route: 065
     Dates: start: 20141222, end: 20150122
  2. NIVOLUMAB [Suspect]
     Active Substance: NIVOLUMAB
     Dosage: 2 MG/KG, UNK
     Route: 041
     Dates: start: 20150225, end: 20150225
  3. NIVOLUMAB [Suspect]
     Active Substance: NIVOLUMAB
     Dosage: 2 MG/KG, UNK
     Route: 041
     Dates: start: 20150318, end: 20150318
  4. NIVOLUMAB [Suspect]
     Active Substance: NIVOLUMAB
     Indication: MALIGNANT MELANOMA
     Dosage: 2 MG/KG, UNK
     Route: 041
     Dates: start: 20150128, end: 20150128
  5. NIVOLUMAB [Suspect]
     Active Substance: NIVOLUMAB
     Dosage: 2 MG/KG, UNK
     Route: 041
     Dates: start: 20150413, end: 20150413
  6. RINDERON                           /00008501/ [Concomitant]
     Active Substance: BETAMETHASONE
     Dosage: 1.50 MG, UNK
     Route: 065
     Dates: start: 20150123

REACTIONS (5)
  - Gastrointestinal perforation [Recovered/Resolved]
  - Blood thyroid stimulating hormone increased [Not Recovered/Not Resolved]
  - Anti-thyroid antibody positive [Unknown]
  - Blood cortisol decreased [Unknown]
  - Ileus [Unknown]

NARRATIVE: CASE EVENT DATE: 2015
